FAERS Safety Report 13468985 (Version 11)
Quarter: 2022Q1

REPORT INFORMATION
  Report Type: Report from Study
  Country: FR (occurrence: FR)
  Receive Date: 20170421
  Receipt Date: 20220203
  Transmission Date: 20220423
  Serious: Yes (Hospitalization, Other)
  Sender: FDA-Public Use
  Company Number: FR-PFIZER INC-2017157485

PATIENT
  Age: 37 Year
  Sex: Female
  Weight: 80 kg

DRUGS (29)
  1. INLYTA [Suspect]
     Active Substance: AXITINIB
     Indication: Metastatic renal cell carcinoma
     Dosage: 5 MG, 2X/DAY (2 WEEKS/3)
     Route: 048
     Dates: start: 20160520
  2. INLYTA [Suspect]
     Active Substance: AXITINIB
     Dosage: 10 MG EVERY SECOND DAY
     Route: 048
     Dates: start: 20160621
  3. INLYTA [Suspect]
     Active Substance: AXITINIB
     Dosage: 3 MG, 2X/DAY
     Route: 048
     Dates: start: 20160719, end: 201609
  4. INLYTA [Suspect]
     Active Substance: AXITINIB
     Dosage: 3 MG 2X/DAY (5 DAYS/7), CYCLIC
     Route: 048
     Dates: start: 20161017, end: 20170228
  5. NIVOLUMAB [Suspect]
     Active Substance: NIVOLUMAB
     Dosage: 3 MG, 2X/DAY (5 DAYS/7), CYCLIC
     Dates: start: 201703
  6. CODEINE\GRINDELIA HIRSUTULA WHOLE\SULFOGAIACOL [Concomitant]
     Active Substance: CODEINE\GRINDELIA HIRSUTULA WHOLE\SULFOGAIACOL
     Indication: Cough
     Dosage: UNK
     Dates: start: 201607
  7. RACECADOTRIL [Concomitant]
     Active Substance: RACECADOTRIL
     Indication: Diarrhoea
     Dosage: UNK
     Dates: start: 201605
  8. TRONOTHANE [Concomitant]
     Active Substance: PRAMOXINE
     Indication: Anal inflammation
     Dosage: UNK
     Dates: start: 201508
  9. PROCTOLOG /01026901/ [Concomitant]
     Indication: Anal inflammation
     Dosage: UNK
     Dates: start: 201508
  10. SMECTA [Concomitant]
     Active Substance: MONTMORILLONITE
     Indication: Diarrhoea
     Dosage: UNK
     Dates: start: 201506
  11. TITANOREINE /02208801/ [Concomitant]
     Indication: Haemorrhoids
     Dosage: UNK
     Dates: start: 201502
  12. LEVOTHYROXINE [Concomitant]
     Active Substance: LEVOTHYROXINE
     Indication: Blood thyroid stimulating hormone increased
     Dosage: 62.5 UG, UNK
     Dates: start: 201503, end: 201505
  13. LEVOTHYROXINE [Concomitant]
     Active Substance: LEVOTHYROXINE
     Indication: Hypothyroidism
     Dosage: 75 UG, UNK
     Dates: start: 201506, end: 201510
  14. LEVOTHYROXINE [Concomitant]
     Active Substance: LEVOTHYROXINE
     Dosage: 50 UG, UNK
     Dates: start: 201510, end: 201512
  15. LEVOTHYROXINE [Concomitant]
     Active Substance: LEVOTHYROXINE
     Dosage: 62.5 UG, UNK
     Dates: start: 201512, end: 201602
  16. LEVOTHYROXINE [Concomitant]
     Active Substance: LEVOTHYROXINE
     Dosage: 100 UG, UNK
     Dates: start: 201602, end: 201604
  17. LEVOTHYROXINE [Concomitant]
     Active Substance: LEVOTHYROXINE
     Dosage: 125 UG, UNK
     Dates: start: 201504, end: 201605
  18. LEVOTHYROXINE [Concomitant]
     Active Substance: LEVOTHYROXINE
     Dosage: 150 UG, UNK
     Dates: start: 201605, end: 201606
  19. LEVOTHYROXINE [Concomitant]
     Active Substance: LEVOTHYROXINE
     Dosage: 100 UG, UNK
     Dates: start: 201606, end: 201608
  20. LEVOTHYROXINE [Concomitant]
     Active Substance: LEVOTHYROXINE
     Dosage: 125 UG, UNK
     Dates: start: 201608, end: 201609
  21. LEVOTHYROXINE [Concomitant]
     Active Substance: LEVOTHYROXINE
     Dosage: 150 UG, UNK
     Dates: start: 201609
  22. TOPALGIC [Concomitant]
     Indication: Pain
     Dosage: UNK
     Dates: start: 201609
  23. LOPERAMIDE OXIDE [Concomitant]
     Active Substance: LOPERAMIDE OXIDE
     Indication: Prophylaxis against diarrhoea
     Dosage: UNK
     Dates: start: 201609
  24. SODIUM ALGINATE\SODIUM BICARBONATE [Concomitant]
     Active Substance: SODIUM ALGINATE\SODIUM BICARBONATE
     Indication: Prophylaxis
     Dosage: UNK
     Dates: start: 201602
  25. VOGALENE [Concomitant]
     Active Substance: METOPIMAZINE
     Indication: Prophylaxis of nausea and vomiting
     Dosage: UNK
     Dates: start: 201607
  26. PHLOROGLUCINOL [Concomitant]
     Active Substance: PHLOROGLUCINOL
     Indication: Pain prophylaxis
     Dosage: UNK
     Dates: start: 201609
  27. TAHOR [Concomitant]
     Active Substance: ATORVASTATIN CALCIUM
     Indication: Cerebrovascular accident
     Dosage: UNK
     Dates: start: 201703
  28. KARDEGIC [Concomitant]
     Active Substance: ASPIRIN DL-LYSINE
     Indication: Cerebrovascular accident
     Dosage: UNK
     Dates: start: 201703
  29. ACETAMINOPHEN [Concomitant]
     Active Substance: ACETAMINOPHEN
     Indication: Pain
     Dosage: UNK
     Dates: start: 201610

REACTIONS (9)
  - Ischaemic stroke [Recovered/Resolved]
  - Cough [Recovered/Resolved]
  - Diarrhoea [Recovered/Resolved]
  - Stomatitis [Recovered/Resolved]
  - Dyspnoea exertional [Recovered/Resolved]
  - Pyrexia [Recovered/Resolved]
  - Asthenia [Recovered/Resolved]
  - Pharyngitis [Recovered/Resolved]
  - Diarrhoea [Recovered/Resolved]

NARRATIVE: CASE EVENT DATE: 20160501
